FAERS Safety Report 6286118-X (Version None)
Quarter: 2009Q3

REPORT INFORMATION
  Report Type: 
  Country: None (occurrence: None)
  Receive Date: 20090728
  Receipt Date: 20090716
  Transmission Date: 20100115
  Serious: Yes (Death, Other)
  Sender: FDA-Public Use
  Company Number: DE-ROCHE-631674

PATIENT
  Age: 53 Year
  Sex: Female

DRUGS (3)
  1. XELODA [Suspect]
     Dosage: 2000 MG IN THE MORNING AND 1500 MG IN THE EVENING
     Route: 065
     Dates: start: 20080701
  2. XELODA [Suspect]
     Route: 065
  3. TYVERB [Concomitant]
     Dates: start: 20080701

REACTIONS (4)
  - DEATH [None]
  - DECREASED APPETITE [None]
  - PALMAR-PLANTAR ERYTHRODYSAESTHESIA SYNDROME [None]
  - VOMITING [None]
